FAERS Safety Report 24943710 (Version 1)
Quarter: 2025Q1

REPORT INFORMATION
  Report Type: Spontaneous
  Country: UA (occurrence: UA)
  Receive Date: 20250207
  Receipt Date: 20250207
  Transmission Date: 20250409
  Serious: Yes (Death)
  Sender: MYLAN
  Company Number: UA-MYLANLABS-2025M1011122

PATIENT
  Age: 41 Year
  Sex: Male

DRUGS (3)
  1. PRETOMANID [Suspect]
     Active Substance: PRETOMANID
     Indication: Pulmonary tuberculosis
     Dosage: 0.2 GRAM, QD (1/1 DAY)
     Route: 048
     Dates: start: 20241226, end: 20250112
  2. LINEZOLID [Suspect]
     Active Substance: LINEZOLID
     Indication: Pulmonary tuberculosis
     Dosage: 0.6 GRAM, QD (1/1 DAY)
     Route: 048
     Dates: start: 20241226, end: 20250112
  3. SIRTURO [Suspect]
     Active Substance: BEDAQUILINE FUMARATE
     Indication: Pulmonary tuberculosis
     Dosage: 0.2 GRAM, 3XW (3/1 WEEK)
     Route: 048
     Dates: start: 20241226, end: 20250112

REACTIONS (1)
  - Death [Fatal]

NARRATIVE: CASE EVENT DATE: 20250112
